FAERS Safety Report 23626456 (Version 1)
Quarter: 2024Q1

REPORT INFORMATION
  Report Type: Report from Study
  Country: US (occurrence: US)
  Receive Date: 20240313
  Receipt Date: 20240313
  Transmission Date: 20240410
  Serious: Yes (Other)
  Sender: FDA-Public Use
  Company Number: US-ABBVIE-5672440

PATIENT
  Sex: Male

DRUGS (1)
  1. REFRESH PLUS [Suspect]
     Active Substance: CARBOXYMETHYLCELLULOSE SODIUM
     Indication: Product used for unknown indication
     Route: 047

REACTIONS (7)
  - Cataract [Unknown]
  - Glaucoma [Unknown]
  - Eye discharge [Unknown]
  - Restlessness [Unknown]
  - Poor quality sleep [Unknown]
  - Eye irritation [Unknown]
  - Liquid product physical issue [Unknown]
